FAERS Safety Report 13730786 (Version 2)
Quarter: 2017Q3

REPORT INFORMATION
  Report Type: Spontaneous
  Country: US (occurrence: US)
  Receive Date: 20170707
  Receipt Date: 20170922
  Transmission Date: 20171127
  Serious: Yes (Hospitalization)
  Sender: FDA-Public Use
  Company Number: US-JNJFOC-20170608890

PATIENT
  Age: 46 Year
  Sex: Female

DRUGS (2)
  1. XARELTO [Suspect]
     Active Substance: RIVAROXABAN
     Indication: PULMONARY EMBOLISM
     Route: 048
     Dates: start: 20130827, end: 20140307
  2. XARELTO [Suspect]
     Active Substance: RIVAROXABAN
     Indication: DEEP VEIN THROMBOSIS
     Route: 048
     Dates: start: 20130827, end: 20140307

REACTIONS (3)
  - Vaginal haemorrhage [Recovering/Resolving]
  - Dysfunctional uterine bleeding [Recovering/Resolving]
  - Haemorrhagic cyst [Recovering/Resolving]

NARRATIVE: CASE EVENT DATE: 2013
